FAERS Safety Report 25760786 (Version 1)
Quarter: 2025Q3

REPORT INFORMATION
  Report Type: Spontaneous
  Country: CA (occurrence: CA)
  Receive Date: 20250904
  Receipt Date: 20250904
  Transmission Date: 20251020
  Serious: Yes (Other)
  Sender: PFIZER
  Company Number: CA-PFIZER INC-PV202500106576

PATIENT
  Age: 80 Year
  Sex: Female

DRUGS (2)
  1. BLEOMYCIN SULFATE [Suspect]
     Active Substance: BLEOMYCIN SULFATE
     Indication: Hepatic haemangioma rupture
  2. LIPIODOL [Suspect]
     Active Substance: ETHIODIZED OIL
     Indication: Hepatic haemangioma rupture

REACTIONS (2)
  - Bile duct stenosis [Unknown]
  - Off label use [Unknown]
